FAERS Safety Report 4677734-7 (Version None)
Quarter: 2005Q2

REPORT INFORMATION
  Report Type: 
  Country: None (occurrence: None)
  Receive Date: 20050531
  Receipt Date: 20050428
  Transmission Date: 20051028
  Serious: Yes (Death, Other)
  Sender: FDA-Public Use
  Company Number: PHBS2005JP06089

PATIENT
  Age: 72 Year
  Sex: Female

DRUGS (5)
  1. ENDOXAN [Concomitant]
     Route: 048
  2. PREDONINE [Concomitant]
     Route: 048
  3. CLARITHROMYCIN [Concomitant]
     Route: 048
  4. AMARYL [Concomitant]
     Route: 048
  5. SANDIMMUNE [Suspect]
     Indication: INTERSTITIAL LUNG DISEASE
     Dosage: 150 MG/DAY
     Route: 048
     Dates: start: 20050419, end: 20050427

REACTIONS (3)
  - DISEASE PROGRESSION [None]
  - WHITE BLOOD CELL COUNT DECREASED [None]
  - WHITE BLOOD CELL COUNT INCREASED [None]
